FAERS Safety Report 6391380-9 (Version None)
Quarter: 2009Q4

REPORT INFORMATION
  Report Type: 
  Country: None (occurrence: None)
  Receive Date: 20091005
  Receipt Date: 20090922
  Transmission Date: 20100525
  Serious: Yes (Hospitalization, Other)
  Sender: FDA-Public Use
  Company Number: 2009SP016958

PATIENT
  Age: 39 Year
  Sex: Female
  Weight: 113.3993 kg

DRUGS (6)
  1. NUVARING [Suspect]
     Indication: CONTRACEPTION
     Dosage: ; QM; VAG
     Route: 067
     Dates: start: 20060801, end: 20061113
  2. ATACAND HCT [Concomitant]
  3. METHOTREXATE [Concomitant]
  4. FOLIC ACID [Concomitant]
  5. PREDNISONE [Concomitant]
  6. DYAZIDE [Concomitant]

REACTIONS (4)
  - DEEP VEIN THROMBOSIS [None]
  - PULMONARY ARTERIAL PRESSURE INCREASED [None]
  - PULMONARY EMBOLISM [None]
  - TRICUSPID VALVE INCOMPETENCE [None]
